FAERS Safety Report 4929746-3 (Version None)
Quarter: 2006Q1

REPORT INFORMATION
  Report Type: 
  Country: None (occurrence: None)
  Receive Date: 20060301
  Receipt Date: 20051005
  Transmission Date: 20060701
  Serious: Yes (Hospitalization, Other)
  Sender: FDA-Public Use
  Company Number: US-MERCK-0510USA04131

PATIENT
  Age: 49 Year
  Sex: Male
  Weight: 120 kg

DRUGS (19)
  1. VIOXX [Suspect]
     Indication: ARTHRITIS
     Route: 048
     Dates: start: 20020201, end: 20031001
  2. VIOXX [Suspect]
     Indication: PAIN
     Route: 048
     Dates: start: 20020201, end: 20031001
  3. DIPENTUM [Concomitant]
     Route: 065
  4. ATARAX [Concomitant]
     Route: 065
  5. ATARAX [Concomitant]
     Route: 065
  6. CARAFATE [Concomitant]
     Route: 065
  7. PRINIVIL [Concomitant]
     Route: 065
  8. HYDROCHLOROTHIAZIDE [Concomitant]
     Route: 065
  9. ZYLOPRIM [Suspect]
     Route: 065
  10. ROBINUL [Concomitant]
     Route: 065
  11. REGLAN [Concomitant]
     Route: 065
  12. PROTONIX [Concomitant]
     Route: 065
  13. FOLIC ACID [Concomitant]
     Route: 065
  14. FLONASE [Concomitant]
     Route: 065
  15. ADVAIR DISKUS 100/50 [Concomitant]
     Route: 065
  16. PREDNISONE [Concomitant]
     Route: 065
  17. MECLIZINE [Concomitant]
     Indication: DIZZINESS
     Route: 065
  18. BENEMID [Suspect]
     Route: 065
  19. COLCHICINE [Suspect]
     Route: 065

REACTIONS (10)
  - CEREBROVASCULAR ACCIDENT [None]
  - CHEST DISCOMFORT [None]
  - GASTROINTESTINAL PAIN [None]
  - GENERALISED ANXIETY DISORDER [None]
  - GOUT [None]
  - MIGRAINE WITH AURA [None]
  - RETINAL ARTERY OCCLUSION [None]
  - TRANSIENT ISCHAEMIC ATTACK [None]
  - UPPER RESPIRATORY TRACT INFECTION [None]
  - WEIGHT DECREASED [None]
